APPROVED DRUG PRODUCT: PROPRANOLOL HYDROCHLORIDE
Active Ingredient: PROPRANOLOL HYDROCHLORIDE
Strength: 120MG
Dosage Form/Route: CAPSULE, EXTENDED RELEASE;ORAL
Application: A090321 | Product #003 | TE Code: AB
Applicant: ZYDUS PHARMACEUTICALS USA INC
Approved: Mar 25, 2011 | RLD: No | RS: No | Type: RX